FAERS Safety Report 7877476-0 (Version None)
Quarter: 2011Q4

REPORT INFORMATION
  Report Type: 
  Country: None (occurrence: None)
  Receive Date: 20111031
  Receipt Date: 20111025
  Transmission Date: 20120403
  Serious: Yes (Other)
  Sender: FDA-Public Use
  Company Number: US-PFIZER INC-2010027327

PATIENT
  Age: 79 Year
  Sex: Female

DRUGS (1)
  1. XALATAN [Suspect]
     Dosage: EVERY BED TIME

REACTIONS (4)
  - HAIR GROWTH ABNORMAL [None]
  - BLINDNESS [None]
  - INTRAOCULAR PRESSURE FLUCTUATION [None]
  - GROWTH OF EYELASHES [None]
